FAERS Safety Report 13708943 (Version 4)
Quarter: 2017Q3

REPORT INFORMATION
  Report Type: Spontaneous
  Country: JP (occurrence: JP)
  Receive Date: 20170701
  Receipt Date: 20170905
  Transmission Date: 20171127
  Serious: Yes (Hospitalization, Disabling)
  Sender: FDA-Public Use
  Company Number: JP-AMGEN-JPNSP2017100427

PATIENT
  Age: 74 Year
  Sex: Male
  Weight: 58 kg

DRUGS (20)
  1. RANMARK [Suspect]
     Active Substance: DENOSUMAB
     Indication: METASTASES TO BONE
     Dosage: 120 MG, UNK
     Route: 058
     Dates: start: 20141127, end: 20160512
  2. ZOLADEX LA [Concomitant]
     Active Substance: GOSERELIN ACETATE
     Dosage: 10.8 MG, QD
     Route: 058
     Dates: start: 20150806
  3. NAUZELIN [Concomitant]
     Active Substance: DOMPERIDONE
     Dosage: 10 MG, TID
     Route: 048
  4. LOXONIN [Concomitant]
     Active Substance: LOXOPROFEN SODIUM
     Dosage: 60 MG, TID
     Route: 048
  5. ACINON [Concomitant]
     Active Substance: NIZATIDINE
     Dosage: 75 MG, BID
     Route: 048
  6. MAGLAX [Concomitant]
     Active Substance: MAGNESIUM OXIDE
     Dosage: 660 MG, BID
     Route: 048
  7. SPIRIVA [Concomitant]
     Active Substance: TIOTROPIUM BROMIDE MONOHYDRATE
     Dosage: 504 MUG, UNK
     Route: 055
  8. HARNAL [Concomitant]
     Active Substance: TAMSULOSIN HYDROCHLORIDE
     Dosage: 0.2 MG, QD
     Route: 048
  9. DENOTAS [Concomitant]
     Active Substance: CALCIUM CARBONATE\CHOLECALCIFEROL\MAGNESIUM CARBONATE
     Indication: METASTASES TO BONE
     Dosage: 2 DF, QD
     Route: 048
  10. EPADEL-S [Concomitant]
     Active Substance: ICOSAPENT ETHYL
     Dosage: 900 MG, BID
     Route: 048
  11. MEDICON [Concomitant]
     Active Substance: DEXTROMETHORPHAN HYDROBROMIDE
     Dosage: 30 MG, TID
     Route: 048
  12. KIPRES [Concomitant]
     Active Substance: MONTELUKAST SODIUM
     Dosage: 10 MG, QD
     Route: 048
  13. SOLANAX [Concomitant]
     Active Substance: ALPRAZOLAM
     Dosage: 0.4 MG, TID
     Route: 048
  14. GRACEVIT [Concomitant]
     Active Substance: SITAFLOXACIN
     Dosage: 50 MG, BID
     Route: 048
  15. AMBROXOL HYDROCHLORIDE [Concomitant]
     Active Substance: AMBROXOL HYDROCHLORIDE
     Dosage: 45 MG, QD
     Route: 048
  16. ASPIRIN. [Concomitant]
     Active Substance: ASPIRIN
     Dosage: 100 MG, QD
     Route: 048
  17. LIVALO [Concomitant]
     Active Substance: PITAVASTATIN CALCIUM
     Dosage: 1 MG, QD
     Route: 048
  18. FLOMOX [Concomitant]
     Active Substance: CEFCAPENE PIVOXIL HYDROCHLORIDE HYDRATE
     Dosage: 100 MG, TID
     Route: 048
  19. ARTIST [Concomitant]
     Active Substance: CARVEDILOL
     Dosage: 2.5 MG, BID
     Route: 048
  20. ZADITEN [Concomitant]
     Active Substance: KETOTIFEN FUMARATE
     Dosage: 1 MG, BID
     Route: 048

REACTIONS (2)
  - Platelet count decreased [Unknown]
  - Osteonecrosis of jaw [Not Recovered/Not Resolved]

NARRATIVE: CASE EVENT DATE: 20160314
